FAERS Safety Report 10250124 (Version 1)
Quarter: 2014Q2

REPORT INFORMATION
  Report Type: Spontaneous
  Country: NL (occurrence: NL)
  Receive Date: 20140620
  Receipt Date: 20140620
  Transmission Date: 20141212
  Serious: Yes (Other)
  Sender: FDA-Public Use
  Company Number: NL-PFIZER INC-2014167770

PATIENT
  Age: 21 Year
  Sex: Female

DRUGS (2)
  1. DEPO-PROVERA [Suspect]
     Dosage: 1 DF, EVERY 3 MONTHS
     Dates: start: 20130523
  2. FLIXONASE [Concomitant]
     Dosage: 1 DF, 1X/DAY

REACTIONS (3)
  - Tonsillar disorder [Unknown]
  - Headache [Recovered/Resolved]
  - Chest pain [Recovered/Resolved]
